FAERS Safety Report 5154770-8 (Version None)
Quarter: 2006Q4

REPORT INFORMATION
  Report Type: 
  Country: None (occurrence: None)
  Receive Date: 20061115
  Receipt Date: 20061115
  Transmission Date: 20070319
  Serious: Yes (Hospitalization)
  Sender: FDA-Public Use
  Company Number: None

PATIENT
  Age: 26 Year
  Sex: Male
  Weight: 101.6057 kg

DRUGS (10)
  1. OLANZAPINE [Suspect]
     Indication: PSYCHOTIC DISORDER
     Dosage: 10MG  QHS  PO
     Route: 048
     Dates: start: 20061102, end: 20061105
  2. OLANZAPINE [Suspect]
     Dosage: 15MG  QHS  PO
     Route: 048
     Dates: start: 20061106, end: 20061113
  3. LORAZEPAM [Concomitant]
  4. ZIPRASIDONE HCL [Concomitant]
  5. MIRTAZAPINE [Concomitant]
  6. BENZTROPINE MESYLATE [Concomitant]
  7. TEMAZEPAM [Concomitant]
  8. FOLIC ACID [Concomitant]
  9. MULTI-VITAMIN [Concomitant]
  10. THIAMINE [Concomitant]

REACTIONS (2)
  - HEPATIC STEATOSIS [None]
  - PITTING OEDEMA [None]
